FAERS Safety Report 17327799 (Version 1)
Quarter: 2020Q1

REPORT INFORMATION
  Report Type: Spontaneous
  Country: PT (occurrence: PT)
  Receive Date: 20200127
  Receipt Date: 20200127
  Transmission Date: 20200409
  Serious: Yes (Other)
  Sender: FDA-Public Use
  Company Number: PT-MYLANLABS-2020M1008546

PATIENT
  Age: 2 Year
  Sex: Female

DRUGS (13)
  1. VANCOMYCIN [Suspect]
     Active Substance: VANCOMYCIN
     Indication: KLEBSIELLA INFECTION
     Dosage: UNK
  2. IMIPENEM [Suspect]
     Active Substance: IMIPENEM
     Indication: MENINGITIS PNEUMOCOCCAL
     Dosage: UNK
     Route: 065
  3. AMPICILLIN [Suspect]
     Active Substance: AMPICILLIN
     Indication: ENTEROCOCCAL INFECTION
     Dosage: UNK
  4. CLINDAMYCIN. [Suspect]
     Active Substance: CLINDAMYCIN
     Indication: KLEBSIELLA INFECTION
     Dosage: UNK
  5. AMPICILLIN [Suspect]
     Active Substance: AMPICILLIN
     Indication: KLEBSIELLA INFECTION
     Dosage: UNK
  6. CLINDAMYCIN. [Suspect]
     Active Substance: CLINDAMYCIN
     Indication: ENTEROCOCCAL INFECTION
     Dosage: UNK
     Route: 065
  7. IMIPENEM [Suspect]
     Active Substance: IMIPENEM
     Indication: ENTEROCOCCAL INFECTION
     Dosage: UNK
     Route: 065
  8. IMIPENEM [Suspect]
     Active Substance: IMIPENEM
     Indication: KLEBSIELLA INFECTION
     Dosage: UNK
     Route: 065
  9. ALTEPLASE. [Concomitant]
     Active Substance: ALTEPLASE
     Indication: PRODUCT USED FOR UNKNOWN INDICATION
     Dosage: UNK
     Route: 065
  10. VANCOMYCIN [Suspect]
     Active Substance: VANCOMYCIN
     Indication: MENINGITIS PNEUMOCOCCAL
     Dosage: UNK
  11. VANCOMYCIN [Suspect]
     Active Substance: VANCOMYCIN
     Indication: ENTEROCOCCAL INFECTION
     Dosage: UNK
  12. AMPICILLIN [Suspect]
     Active Substance: AMPICILLIN
     Indication: MENINGITIS PNEUMOCOCCAL
     Dosage: UNK
  13. CLINDAMYCIN. [Suspect]
     Active Substance: CLINDAMYCIN
     Indication: MENINGITIS PNEUMOCOCCAL
     Dosage: UNK

REACTIONS (3)
  - Neutropenia [Recovering/Resolving]
  - Drug ineffective [Unknown]
  - Abscess [Recovering/Resolving]
